FAERS Safety Report 4362854-7 (Version None)
Quarter: 2004Q2

REPORT INFORMATION
  Report Type: 
  Country: None (occurrence: None)
  Receive Date: 20040517
  Receipt Date: 20040402
  Transmission Date: 20050107
  Serious: No
  Sender: FDA-Public Use
  Company Number: S04-USA-01821-01

PATIENT
  Age: 78 Year
  Sex: Male

DRUGS (1)
  1. NAMENDA [Suspect]
     Dosage: 5 MG QD PO
     Route: 048
     Dates: start: 20040331

REACTIONS (2)
  - CONFUSIONAL STATE [None]
  - DIARRHOEA [None]
